FAERS Safety Report 16217102 (Version 1)
Quarter: 2019Q2

REPORT INFORMATION
  Report Type: Spontaneous
  Country: US (occurrence: US)
  Receive Date: 20190419
  Receipt Date: 20190419
  Transmission Date: 20190711
  Serious: Yes (Hospitalization)
  Sender: FDA-Public Use
  Company Number: US-ASTRAZENECA-2019SE57247

PATIENT
  Age: 70 Year
  Sex: Male
  Weight: 63.9 kg

DRUGS (15)
  1. OMEPRAZOLE. [Suspect]
     Active Substance: OMEPRAZOLE
     Indication: GASTROOESOPHAGEAL REFLUX DISEASE
     Route: 048
     Dates: start: 20190119
  2. OXYCODONE [Concomitant]
     Active Substance: OXYCODONE
     Indication: ABDOMINAL PAIN UPPER
  3. TENOFOVIR [Concomitant]
     Active Substance: TENOFOVIR
     Indication: CHRONIC HEPATITIS B
  4. OMEGA-3 FATTY ACIDS [Concomitant]
     Active Substance: OMEGA-3 FATTY ACIDS
     Indication: NUTRITIONAL SUPPLEMENTATION
  5. OMEPRAZOLE. [Suspect]
     Active Substance: OMEPRAZOLE
     Indication: GASTROOESOPHAGEAL REFLUX DISEASE
     Route: 048
     Dates: start: 20180301, end: 20190114
  6. RANITIDINE. [Suspect]
     Active Substance: RANITIDINE
     Indication: GASTROOESOPHAGEAL REFLUX DISEASE
     Route: 048
     Dates: start: 20150323, end: 20190114
  7. HYDROXYZINE HYDROCHLORIDE. [Concomitant]
     Active Substance: HYDROXYZINE HYDROCHLORIDE
     Indication: PRURITUS
  8. HYPROMELLOSE [Concomitant]
     Active Substance: HYPROMELLOSES
     Indication: DRY EYE
     Dates: start: 2013
  9. DIPHENHYDRAMINE. [Concomitant]
     Active Substance: DIPHENHYDRAMINE
     Indication: PRURITUS
  10. CALCIUM-VITAMIN D [Concomitant]
     Active Substance: CALCIUM\VITAMIN D
     Indication: NUTRITIONAL SUPPLEMENTATION
     Dates: start: 2013
  11. HYPROMELLOSE [Concomitant]
     Active Substance: HYPROMELLOSES
     Indication: EYE LUBRICATION THERAPY
     Dates: start: 2013
  12. LASIX [Suspect]
     Active Substance: FUROSEMIDE
     Indication: ABDOMINAL DISTENSION
     Route: 048
     Dates: start: 20181231, end: 20190106
  13. ENTECAVIR. [Concomitant]
     Active Substance: ENTECAVIR
     Indication: CHRONIC HEPATITIS B
  14. LOPERAMIDE [Concomitant]
     Active Substance: LOPERAMIDE
     Indication: DIARRHOEA
  15. LOVENOX [Concomitant]
     Active Substance: ENOXAPARIN SODIUM
     Indication: PORTAL VEIN THROMBOSIS
     Dates: start: 20190102

REACTIONS (1)
  - Pancreatitis [Recovered/Resolved]

NARRATIVE: CASE EVENT DATE: 20190114
